FAERS Safety Report 24916388 (Version 1)
Quarter: 2025Q1

REPORT INFORMATION
  Report Type: Spontaneous
  Country: US (occurrence: None)
  Receive Date: 20250131
  Receipt Date: 20250131
  Transmission Date: 20250409
  Serious: Yes (Death)
  Sender: FDA-CTU
  Company Number: None

PATIENT
  Age: 62 Year
  Sex: Male

DRUGS (2)
  1. TOBRAMYCIN [Suspect]
     Active Substance: TOBRAMYCIN
     Indication: Bronchiectasis
     Dosage: 300MG TWICE DAILY VIA NEBULIZER
     Route: 050
     Dates: start: 202105
  2. DROXIDOPA [Concomitant]
     Active Substance: DROXIDOPA

REACTIONS (2)
  - Pneumonia [None]
  - Septic shock [None]

NARRATIVE: CASE EVENT DATE: 20250122
